FAERS Safety Report 9798923 (Version 5)
Quarter: 2014Q1

REPORT INFORMATION
  Report Type: Spontaneous
  Country: IT (occurrence: None)
  Receive Date: 20131231
  Receipt Date: 20140318
  Transmission Date: 20141002
  Serious: Yes (Hospitalization)
  Sender: FDA-Public Use
  Company Number: AUR-APL-2013-10840

PATIENT
  Age: 55 Year
  Sex: Male
  Weight: 80 kg

DRUGS (7)
  1. BISOPROLOL [Suspect]
     Indication: CARDIAC FAILURE
     Dosage: 5 MG, (5 MG, 1 IN 1 D), ORAL
     Route: 048
     Dates: start: 20130101, end: 20131210
  2. AMIODARONE (AMIODARONE) [Suspect]
     Indication: ATRIAL FIBRILLATION
     Dosage: 200 MG, (200 MG, 1 IN 1 D), ORAL
     Route: 048
     Dates: start: 20131203, end: 20131210
  3. LASIX (FUROSEMIDE) [Concomitant]
  4. UNIPRIL (RAMIPRIL) [Concomitant]
  5. LUVION (CANRENONE) [Concomitant]
  6. CARDIOASPIRIN (ACETYLSALICYLIC ACID) [Concomitant]
  7. VYTORIN (INEGY) [Concomitant]

REACTIONS (8)
  - Bradycardia [None]
  - Medication error [None]
  - Overdose [None]
  - Drug interaction [None]
  - Drug prescribing error [None]
  - Inappropriate schedule of drug administration [None]
  - Drug prescribing error [None]
  - Iatrogenic injury [None]
